FAERS Safety Report 9332578 (Version 4)
Quarter: 2014Q4

REPORT INFORMATION
  Report Type: Report from Study
  Country: CA (occurrence: CA)
  Receive Date: 20130606
  Receipt Date: 20141029
  Transmission Date: 20150529
  Serious: Yes (Other)
  Sender: FDA-Public Use
  Company Number: CA-JNJFOC-20130201703

PATIENT
  Age: 33 Year
  Sex: Female
  Weight: 55 kg

DRUGS (8)
  1. REMICADE [Suspect]
     Active Substance: INFLIXIMAB
     Indication: COLITIS ULCERATIVE
     Route: 042
     Dates: start: 20131007
  2. KEFLEX [Suspect]
     Active Substance: CEPHALEXIN
     Indication: INFECTED CYST
     Route: 065
     Dates: start: 201305
  3. PRENATAL VITAMINS [Concomitant]
     Active Substance: VITAMINS
     Route: 065
  4. REMICADE [Suspect]
     Active Substance: INFLIXIMAB
     Indication: COLITIS ULCERATIVE
     Route: 042
     Dates: start: 2011
  5. RANITIDINE [Suspect]
     Active Substance: RANITIDINE\RANITIDINE HYDROCHLORIDE
     Indication: PRODUCT USED FOR UNKNOWN INDICATION
     Route: 065
  6. REMICADE [Suspect]
     Active Substance: INFLIXIMAB
     Indication: COLITIS ULCERATIVE
     Route: 042
     Dates: start: 20130722
  7. REMICADE [Suspect]
     Active Substance: INFLIXIMAB
     Indication: COLITIS ULCERATIVE
     Route: 042
     Dates: start: 20121029
  8. REMICADE [Suspect]
     Active Substance: INFLIXIMAB
     Indication: COLITIS ULCERATIVE
     Route: 042
     Dates: start: 20121001

REACTIONS (4)
  - Vaginal haemorrhage [Recovered/Resolved]
  - Exposure during pregnancy [Recovered/Resolved]
  - Infected cyst [Recovering/Resolving]
  - Muscle spasms [Recovered/Resolved]

NARRATIVE: CASE EVENT DATE: 201303
